FAERS Safety Report 5031549-9 (Version None)
Quarter: 2006Q2

REPORT INFORMATION
  Report Type: 
  Country: None (occurrence: None)
  Receive Date: 20060616
  Receipt Date: 20060605
  Transmission Date: 20061013
  Serious: Yes (Other)
  Sender: FDA-Public Use
  Company Number: 225545

PATIENT
  Age: 64 Year
  Sex: Female

DRUGS (1)
  1. AVASTIN [Suspect]
     Indication: MACULAR DEGENERATION
     Dosage: 0.05, INTRACULAR
     Route: 031
     Dates: start: 20060510, end: 20060510

REACTIONS (11)
  - ABDOMINAL PAIN [None]
  - ANOREXIA [None]
  - CONTUSION [None]
  - COUGH [None]
  - EYE PAIN [None]
  - EYE SWELLING [None]
  - HAEMATOCHEZIA [None]
  - HEADACHE [None]
  - INCREASED UPPER AIRWAY SECRETION [None]
  - OCULAR HYPERAEMIA [None]
  - RHINALGIA [None]
